FAERS Safety Report 7020314-9 (Version None)
Quarter: 2010Q3

REPORT INFORMATION
  Report Type: 
  Country: None (occurrence: None)
  Receive Date: 20100927
  Receipt Date: 20100910
  Transmission Date: 20110219
  Serious: Yes (Hospitalization)
  Sender: FDA-Public Use
  Company Number: 016245

PATIENT
  Sex: Female
  Weight: 54.8 kg

DRUGS (11)
  1. CIMZIA [Suspect]
     Indication: CROHN'S DISEASE
     Dosage: (400 MG 1X/MONTH SUBCUTANEOUS)
     Route: 058
     Dates: start: 20090404
  2. PROZAC /00724401/ [Concomitant]
  3. PHENERGAN HCL [Concomitant]
  4. ADVAIR DISKUS 100/50 [Concomitant]
  5. WELLBUTRIN [Concomitant]
  6. ALBUTEROL [Concomitant]
  7. PRILOSEC [Concomitant]
  8. SPIRIVA [Concomitant]
  9. MULTI-VITAMINS [Concomitant]
  10. CALCITRIOL [Concomitant]
  11. GABAPENTIN [Concomitant]

REACTIONS (5)
  - DEVICE RELATED INFECTION [None]
  - DYSURIA [None]
  - PYREXIA [None]
  - URINARY TRACT INFECTION [None]
  - WEIGHT INCREASED [None]
